FAERS Safety Report 9036877 (Version 1)
Quarter: 2013Q1

REPORT INFORMATION
  Report Type: Report from Study
  Country: US (occurrence: US)
  Receive Date: 20130129
  Receipt Date: 20130129
  Transmission Date: 20140127
  Serious: No
  Sender: FDA-Public Use
  Company Number: US-ABBOTT-12P-163-0898894-00

PATIENT
  Age: 50 Year
  Sex: Female

DRUGS (9)
  1. HUMIRA 40 MG/0.8 ML PEN [Suspect]
     Indication: CROHN^S DISEASE
     Dates: start: 20111115
  2. CYMBALTA [Concomitant]
     Indication: DEPRESSION
  3. KLONOPIN [Concomitant]
     Indication: DEPRESSION
  4. XANAX [Concomitant]
     Indication: ANXIETY
  5. XANAX [Concomitant]
     Indication: DEPRESSION
  6. POTASSIUM [Concomitant]
     Indication: SUPPLEMENTATION THERAPY
     Dosage: WHEN HAVING DIARRHEA
  7. VITAMIN B12 [Concomitant]
     Indication: PRODUCT USED FOR UNKNOWN INDICATION
  8. LOMOTIL [Concomitant]
     Indication: DIARRHOEA
  9. ZOFRAN [Concomitant]
     Indication: NAUSEA

REACTIONS (5)
  - Abdominal pain [Not Recovered/Not Resolved]
  - Diarrhoea [Not Recovered/Not Resolved]
  - Abdominal distension [Not Recovered/Not Resolved]
  - Arthralgia [Unknown]
  - Myalgia [Not Recovered/Not Resolved]
